FAERS Safety Report 18696094 (Version 1)
Quarter: 2021Q1

REPORT INFORMATION
  Report Type: Spontaneous
  Country: AU (occurrence: AU)
  Receive Date: 20210104
  Receipt Date: 20210104
  Transmission Date: 20210419
  Serious: Yes (Other)
  Sender: FDA-Public Use
  Company Number: AU-AMERICAN REGENT INC-2020002754

PATIENT
  Age: 36 Year
  Sex: Female

DRUGS (1)
  1. FERINJECT [Suspect]
     Active Substance: FERRIC CARBOXYMALTOSE
     Indication: IRON DEFICIENCY
     Dosage: 800 MILLIGRAM
     Route: 042
     Dates: start: 20200902

REACTIONS (3)
  - Maternal exposure during pregnancy [Recovered/Resolved]
  - Pulmonary embolism [Unknown]
  - Post procedural haemorrhage [Unknown]

NARRATIVE: CASE EVENT DATE: 2020
